FAERS Safety Report 6089457-0 (Version None)
Quarter: 2009Q1

REPORT INFORMATION
  Report Type: 
  Country: None (occurrence: None)
  Receive Date: 20090219
  Receipt Date: 20090206
  Transmission Date: 20090719
  Serious: Yes (Other)
  Sender: FDA-Public Use
  Company Number: 8043002

PATIENT
  Age: 67 Year
  Sex: Female

DRUGS (4)
  1. KEPPRA [Suspect]
     Indication: EPILEPSY
     Dosage: 1000 MG 2/D PO
     Route: 048
  2. VIMPAT [Suspect]
     Indication: EPILEPSY
     Dosage: 100 MG 2/D PO
     Route: 048
  3. ZONEGRAN [Concomitant]
  4. CIPRAMIL /00582601/ [Concomitant]

REACTIONS (1)
  - LIBIDO DECREASED [None]
